FAERS Safety Report 8150668-1 (Version None)
Quarter: 2012Q1

REPORT INFORMATION
  Report Type: 
  Country: None (occurrence: None)
  Receive Date: 20120220
  Receipt Date: 20120216
  Transmission Date: 20120608
  Serious: Yes (Death)
  Sender: FDA-Public Use
  Company Number: PHEH2012US003995

PATIENT
  Sex: Male

DRUGS (2)
  1. LISINOPRIL [Concomitant]
     Dosage: 2.5 MG, UNK
  2. AFINITOR [Suspect]
     Dosage: 10 MG, DAILY
     Route: 048

REACTIONS (1)
  - DEATH [None]
